FAERS Safety Report 4716467-5 (Version None)
Quarter: 2005Q3

REPORT INFORMATION
  Report Type: 
  Country: None (occurrence: None)
  Receive Date: 20050714
  Receipt Date: 20050707
  Transmission Date: 20060218
  Serious: Yes (Other)
  Sender: FDA-Public Use
  Company Number: 200510332BYL

PATIENT
  Age: 67 Year
  Sex: Female

DRUGS (3)
  1. GLUCOBAY [Suspect]
     Indication: DIABETES MELLITUS
     Dosage: 300 MG, TOTAL DAILY, ORAL
     Route: 048
  2. ACINON [Concomitant]
  3. SELBEX [Concomitant]

REACTIONS (1)
  - WHITE BLOOD CELL COUNT DECREASED [None]
